FAERS Safety Report 11888079 (Version 3)
Quarter: 2016Q1

REPORT INFORMATION
  Report Type: Report from Study
  Country: US (occurrence: US)
  Receive Date: 20160105
  Receipt Date: 20160128
  Transmission Date: 20160526
  Serious: No
  Sender: FDA-Public Use
  Company Number: US-AMGEN-USASL2015138584

PATIENT
  Age: 59 Year
  Sex: Female

DRUGS (1)
  1. ENBREL [Suspect]
     Active Substance: ETANERCEPT
     Indication: RHEUMATOID ARTHRITIS
     Dosage: 50 MG, ONCE WEEKLY
     Route: 065
     Dates: start: 20151130

REACTIONS (8)
  - Injection site swelling [Not Recovered/Not Resolved]
  - Injection site irritation [Unknown]
  - Drug effect incomplete [Unknown]
  - Injection site pruritus [Unknown]
  - Injection site reaction [Not Recovered/Not Resolved]
  - Injection site pain [Unknown]
  - Rash [Unknown]
  - Injection site erythema [Unknown]

NARRATIVE: CASE EVENT DATE: 201512
